FAERS Safety Report 5750497-X (Version None)
Quarter: 2008Q2

REPORT INFORMATION
  Report Type: 
  Country: None (occurrence: None)
  Receive Date: 20080528
  Receipt Date: 20080516
  Transmission Date: 20081010
  Serious: Yes (Hospitalization, Disabling, Other)
  Sender: FDA-Public Use
  Company Number: US-ROCHE-401324

PATIENT
  Sex: Male
  Weight: 86.2 kg

DRUGS (1)
  1. ACCUTANE [Suspect]
     Route: 048
     Dates: start: 19990601, end: 20010101

REACTIONS (22)
  - ALANINE AMINOTRANSFERASE INCREASED [None]
  - ANAEMIA [None]
  - ANXIETY [None]
  - ASPARTATE AMINOTRANSFERASE INCREASED [None]
  - BLOOD TRIGLYCERIDES INCREASED [None]
  - BUNDLE BRANCH BLOCK RIGHT [None]
  - CHEST PAIN [None]
  - COLITIS [None]
  - COLITIS ULCERATIVE [None]
  - CUSHINGOID [None]
  - DEPRESSION [None]
  - FLUSHING [None]
  - GASTROINTESTINAL DISORDER [None]
  - HEADACHE [None]
  - HYPERTENSION [None]
  - INFLAMMATORY BOWEL DISEASE [None]
  - INTESTINAL HAEMORRHAGE [None]
  - INTRA-ABDOMINAL HAEMORRHAGE [None]
  - IRRITABILITY [None]
  - IRRITABLE BOWEL SYNDROME [None]
  - MULTI-ORGAN DISORDER [None]
  - RECTAL HAEMORRHAGE [None]
